FAERS Safety Report 19682209 (Version 2)
Quarter: 2022Q1

REPORT INFORMATION
  Report Type: Report from Study
  Country: US (occurrence: US)
  Receive Date: 20210810
  Receipt Date: 20220112
  Transmission Date: 20220424
  Serious: Yes (Hospitalization)
  Sender: FDA-Public Use
  Company Number: US-TAKEDA-2021TUS047527

PATIENT
  Sex: Male

DRUGS (4)
  1. TEDUGLUTIDE [Suspect]
     Active Substance: TEDUGLUTIDE
     Indication: Product used for unknown indication
     Dosage: 3.8000 UNKNOWN UNIT
     Route: 050
     Dates: start: 20210503
  2. TEDUGLUTIDE [Suspect]
     Active Substance: TEDUGLUTIDE
     Indication: Product used for unknown indication
     Dosage: 3.8000 UNKNOWN UNIT
     Route: 050
     Dates: start: 20210503
  3. TEDUGLUTIDE [Suspect]
     Active Substance: TEDUGLUTIDE
     Indication: Product used for unknown indication
     Dosage: 3.8000 UNKNOWN UNIT
     Route: 050
     Dates: start: 20210503
  4. TEDUGLUTIDE [Suspect]
     Active Substance: TEDUGLUTIDE
     Indication: Product used for unknown indication
     Dosage: 3.8000 UNKNOWN UNIT
     Route: 050
     Dates: start: 20210503

REACTIONS (2)
  - Hospitalisation [Unknown]
  - Therapy interrupted [Unknown]
